FAERS Safety Report 9922375 (Version 2)
Quarter: 2014Q1

REPORT INFORMATION
  Report Type: Spontaneous
  Country: US (occurrence: US)
  Receive Date: 20140225
  Receipt Date: 20140225
  Transmission Date: 20141002
  Serious: Yes (Other)
  Sender: FDA-Public Use
  Company Number: US-THROMBOGENICS INC-JET-2014-037

PATIENT
  Sex: Female

DRUGS (2)
  1. JETREA [Suspect]
     Indication: VITREOUS ADHESIONS
     Dosage: 0.125 MG, ONE TIME DOSE
     Route: 031
     Dates: start: 2013, end: 2013
  2. JETREA [Suspect]
     Indication: MACULAR HOLE

REACTIONS (5)
  - Retinal injury [Unknown]
  - Retinal oedema [Not Recovered/Not Resolved]
  - Photopsia [Unknown]
  - Metamorphopsia [Unknown]
  - Visual acuity reduced [Not Recovered/Not Resolved]
